FAERS Safety Report 4903571-1 (Version None)
Quarter: 2006Q1

REPORT INFORMATION
  Report Type: 
  Country: None (occurrence: None)
  Receive Date: 20060203
  Receipt Date: 20060120
  Transmission Date: 20060701
  Serious: Yes (Death)
  Sender: FDA-Public Use
  Company Number: 026

PATIENT
  Sex: Male
  Weight: 69.8539 kg

DRUGS (9)
  1. FAZACLO ODT [Suspect]
     Indication: AGGRESSION
     Dosage: 25 MG PO HS
     Route: 048
     Dates: start: 20050905, end: 20051203
  2. FAZACLO ODT [Suspect]
     Indication: DEMENTIA
     Dosage: 25 MG PO HS
     Route: 048
     Dates: start: 20050905, end: 20051203
  3. ARICEPT [Concomitant]
  4. LEVOXYL [Concomitant]
  5. FUROSEMIDE [Concomitant]
  6. LISINOPRIL [Concomitant]
  7. MORICIZINE [Concomitant]
  8. KLOR-CON [Concomitant]
  9. MULTI-VITAMIN [Concomitant]

REACTIONS (3)
  - CARDIO-RESPIRATORY ARREST [None]
  - COUGH [None]
  - LUNG DISORDER [None]
